FAERS Safety Report 12876841 (Version 2)
Quarter: 2016Q4

REPORT INFORMATION
  Report Type: Report from Study
  Country: None (occurrence: DE)
  Receive Date: 20161024
  Receipt Date: 20161025
  Transmission Date: 20170207
  Serious: Yes (Hospitalization)
  Sender: FDA-Public Use
  Company Number: DE-ABBVIE-16K-062-1758435-00

PATIENT
  Age: 73 Year
  Sex: Male

DRUGS (4)
  1. VALSARTAN. [Concomitant]
     Active Substance: VALSARTAN
     Indication: PRODUCT USED FOR UNKNOWN INDICATION
  2. ASPIRIN. [Concomitant]
     Active Substance: ASPIRIN
     Indication: PRODUCT USED FOR UNKNOWN INDICATION
  3. TAMSULOSIN [Concomitant]
     Active Substance: TAMSULOSIN
     Indication: PRODUCT USED FOR UNKNOWN INDICATION
  4. HUMIRA [Suspect]
     Active Substance: ADALIMUMAB
     Indication: PSORIATIC ARTHROPATHY
     Route: 058
     Dates: start: 2012

REACTIONS (5)
  - Aphasia [Recovering/Resolving]
  - Headache [Recovering/Resolving]
  - Blood pressure abnormal [Recovering/Resolving]
  - Cerebrovascular accident [Recovered/Resolved]
  - Migraine with aura [Recovering/Resolving]

NARRATIVE: CASE EVENT DATE: 20161009
